FAERS Safety Report 8803244 (Version 2)
Quarter: 2012Q4

REPORT INFORMATION
  Report Type: 
  Country: US (occurrence: US)
  Receive Date: 20120924
  Receipt Date: 20121012
  Transmission Date: 20130627
  Serious: No
  Sender: FDA-Public Use
  Company Number: US-PFIZER INC-2012233903

PATIENT
  Age: 64 Year
  Sex: Male

DRUGS (3)
  1. GABAPENTIN [Suspect]
     Indication: NEURALGIA
     Dosage: 4800 mg, daily
  2. IBUPROFEN [Suspect]
     Indication: NEURALGIA
     Dosage: 1600 mg, daily
  3. PAMELOR [Suspect]
     Indication: NEURALGIA
     Dosage: 30 mg, daily

REACTIONS (1)
  - Drug ineffective [Unknown]
